FAERS Safety Report 4958470-6 (Version None)
Quarter: 2006Q1

REPORT INFORMATION
  Report Type: 
  Country: None (occurrence: None)
  Receive Date: 20060330
  Receipt Date: 20060221
  Transmission Date: 20060701
  Serious: Yes (Hospitalization)
  Sender: FDA-Public Use
  Company Number: FR-ABBOTT-06P-056-0325630-00

PATIENT
  Age: 41 Year
  Sex: Male

DRUGS (10)
  1. NORVIR [Suspect]
     Indication: HIV INFECTION
     Route: 048
     Dates: start: 20051001, end: 20051123
  2. NORVIR [Suspect]
     Dates: start: 20060106
  3. FOSAMPRENAVIR TABLET [Suspect]
     Indication: HIV INFECTION
     Route: 048
     Dates: start: 20051001, end: 20051123
  4. FOSAMPRENAVIR TABLET [Suspect]
     Dates: start: 20060106
  5. LAMIVUDINE AND ZIDOVUDINE [Suspect]
     Indication: HIV INFECTION
     Route: 048
     Dates: start: 20051001, end: 20051123
  6. LAMIVUDINE AND ZIDOVUDINE [Suspect]
     Dates: start: 20060106
  7. FOLIC ACID [Suspect]
     Indication: DRUG USE FOR UNKNOWN INDICATION
     Route: 048
  8. BUPRENORPHINE HCL [Suspect]
     Indication: DRUG USE FOR UNKNOWN INDICATION
     Route: 048
  9. BACTRIM [Suspect]
     Indication: DRUG USE FOR UNKNOWN INDICATION
     Route: 048
  10. INDINAVIR SULFATE [Concomitant]
     Indication: DRUG USE FOR UNKNOWN INDICATION
     Dates: end: 20040101

REACTIONS (9)
  - ABDOMINAL PAIN [None]
  - BRONCHOPLEURAL FISTULA [None]
  - CALCULUS URETHRAL [None]
  - NEPHROLITHIASIS [None]
  - PNEUMOTHORAX [None]
  - PULMONARY NECROSIS [None]
  - PYREXIA [None]
  - RENAL PAIN [None]
  - SEPTIC SHOCK [None]
